FAERS Safety Report 7003277-1 (Version None)
Quarter: 2010Q3

REPORT INFORMATION
  Report Type: 
  Country: None (occurrence: None)
  Receive Date: 20100920
  Receipt Date: 20100908
  Transmission Date: 20110219
  Serious: Yes (Other)
  Sender: FDA-Public Use
  Company Number: JP-PFIZER INC-2010107272

PATIENT
  Sex: Male

DRUGS (3)
  1. LIPITOR [Suspect]
     Dosage: UNK
     Route: 048
     Dates: start: 20100601
  2. NORVASC [Concomitant]
     Dosage: UNK
     Route: 048
     Dates: start: 20090601
  3. ZYLORIC ^GLAXO WELLCOME^ [Concomitant]
     Dosage: UNK
     Route: 048
     Dates: start: 20080601

REACTIONS (1)
  - BLOOD CREATINE PHOSPHOKINASE INCREASED [None]
